FAERS Safety Report 12992027 (Version 3)
Quarter: 2016Q4

REPORT INFORMATION
  Report Type: Report from Study
  Country: DE (occurrence: DE)
  Receive Date: 20161201
  Receipt Date: 20161215
  Transmission Date: 20170207
  Serious: Yes (Hospitalization)
  Sender: FDA-Public Use
  Company Number: DE-B.I. PHARMACEUTICALS,INC./RIDGEFIELD-2016-BI-080674

PATIENT
  Age: 72 Year
  Sex: Male
  Weight: 76 kg

DRUGS (16)
  1. PEMETREXED [Suspect]
     Active Substance: PEMETREXED
     Indication: PLEURAL MESOTHELIOMA MALIGNANT
     Route: 042
     Dates: start: 20160926
  2. CISPLATIN. [Suspect]
     Active Substance: CISPLATIN
     Indication: PLEURAL MESOTHELIOMA MALIGNANT
     Route: 042
     Dates: start: 20160926
  3. PLACEBO [Suspect]
     Active Substance: UNSPECIFIED INGREDIENT
     Indication: PLEURAL MESOTHELIOMA MALIGNANT
     Route: 048
     Dates: start: 20160927
  4. KCL [Concomitant]
     Active Substance: POTASSIUM CHLORIDE
     Indication: HYPOKALAEMIA
     Dosage: 40 MMOL
     Route: 042
     Dates: start: 20161205, end: 20161205
  5. FOLSAN [Concomitant]
     Active Substance: FOLIC ACID
     Indication: PROPHYLAXIS
     Route: 048
     Dates: start: 20160916
  6. MULTILIND [Concomitant]
     Indication: INTERTRIGO
  7. FUNGIZID [Concomitant]
     Indication: PENILE ULCERATION
     Route: 061
     Dates: start: 20161121, end: 20161124
  8. AMOXICILLIN. [Concomitant]
     Active Substance: AMOXICILLIN
     Indication: FOLLICULITIS
     Route: 042
     Dates: start: 20161121
  9. MULTILIND [Concomitant]
     Indication: INTERTRIGO
     Route: 061
     Dates: start: 20161004
  10. PANTOZOL [Concomitant]
     Active Substance: PANTOPRAZOLE SODIUM
     Indication: GASTRITIS
     Route: 048
     Dates: start: 20161020, end: 20161205
  11. TOREM [Suspect]
     Active Substance: TORSEMIDE
     Route: 048
     Dates: start: 20161125, end: 20161205
  12. HCT [Concomitant]
     Active Substance: HYDROCHLOROTHIAZIDE
     Indication: HYPERTONIA
     Route: 065
  13. TOREM [Suspect]
     Active Substance: TORSEMIDE
     Indication: OEDEMA PERIPHERAL
     Route: 048
     Dates: start: 20161121, end: 20161124
  14. RAMIPRIL. [Concomitant]
     Active Substance: RAMIPRIL
     Indication: HYPERTONIA
     Route: 048
  15. MOVICOL [Concomitant]
     Active Substance: POLYETHYLENE GLYCOL 3350\POTASSIUM CHLORIDE\SODIUM BICARBONATE\SODIUM CHLORIDE
     Indication: CONSTIPATION
     Dosage: DAILY DOSE: 1X
     Route: 048
     Dates: start: 20161018
  16. AMLODIPINE [Concomitant]
     Active Substance: AMLODIPINE BESYLATE
     Indication: HYPERTONIA
     Route: 048

REACTIONS (7)
  - Balanoposthitis [Not Recovered/Not Resolved]
  - Folliculitis [Not Recovered/Not Resolved]
  - Gastritis [Not Recovered/Not Resolved]
  - Dehydration [Not Recovered/Not Resolved]
  - Stasis dermatitis [Recovered/Resolved]
  - Hyperventilation [Recovered/Resolved]
  - Gastroenteritis norovirus [Not Recovered/Not Resolved]

NARRATIVE: CASE EVENT DATE: 20161115
